FAERS Safety Report 5294528-2 (Version None)
Quarter: 2007Q2

REPORT INFORMATION
  Report Type: 
  Country: None (occurrence: None)
  Receive Date: 20070406
  Receipt Date: 20070322
  Transmission Date: 20071010
  Serious: Yes (Other)
  Sender: FDA-Public Use
  Company Number: TRP_0922_2007

PATIENT
  Sex: Male

DRUGS (2)
  1. RIBAPAK/RIBAVIRIN/THREE RIVERS PHARMA [Suspect]
     Dosage: DF PO
     Route: 048
  2. PEGASYS [Suspect]
     Dosage: DF SC
     Route: 058

REACTIONS (3)
  - DRUG DISPENSING ERROR [None]
  - HAEMOGLOBIN DECREASED [None]
  - OVERDOSE [None]
